FAERS Safety Report 24218089 (Version 2)
Quarter: 2024Q3

REPORT INFORMATION
  Report Type: Report from Study
  Country: MX (occurrence: MX)
  Receive Date: 20240816
  Receipt Date: 20240906
  Transmission Date: 20241016
  Serious: Yes (Other)
  Sender: BIOVITRUM
  Company Number: MX-AstraZeneca-2024A183484

PATIENT
  Age: 18 Month
  Sex: Male
  Weight: 9.8 kg

DRUGS (2)
  1. SYNAGIS [Suspect]
     Active Substance: PALIVIZUMAB
     Indication: Antiviral prophylaxis
     Dosage: 100 MG/1 ML
     Route: 030
     Dates: start: 20240710, end: 20240710
  2. SYNAGIS [Suspect]
     Active Substance: PALIVIZUMAB
     Dosage: 100 MG/1 ML
     Route: 030
     Dates: end: 20240809

REACTIONS (3)
  - Respiratory arrest [Not Recovered/Not Resolved]
  - Secretion discharge [Recovered/Resolved]
  - Tonsillar disorder [Unknown]

NARRATIVE: CASE EVENT DATE: 20240801
